FAERS Safety Report 7679496-8 (Version None)
Quarter: 2011Q3

REPORT INFORMATION
  Report Type: 
  Country: None (occurrence: None)
  Receive Date: 20110812
  Receipt Date: 20110812
  Transmission Date: 20111222
  Serious: Yes (Hospitalization, Disabling, Other)
  Sender: FDA-Public Use
  Company Number: None

PATIENT
  Age: 66 Year
  Sex: Female
  Weight: 80.739 kg

DRUGS (2)
  1. CYMBALTA [Suspect]
     Indication: BACK PAIN
     Dosage: 30 MG
     Route: 048
     Dates: start: 20110429, end: 20110531
  2. CYMBALTA [Suspect]
     Indication: OSTEOARTHRITIS
     Dosage: 30 MG
     Route: 048
     Dates: start: 20110429, end: 20110531

REACTIONS (5)
  - CONFUSIONAL STATE [None]
  - HALLUCINATION [None]
  - PSYCHOTIC DISORDER [None]
  - ROTATOR CUFF SYNDROME [None]
  - FALL [None]
